FAERS Safety Report 9165032 (Version 1)
Quarter: 2013Q1

REPORT INFORMATION
  Report Type: Spontaneous
  Country: US (occurrence: None)
  Receive Date: 20130219
  Receipt Date: 20130219
  Transmission Date: 20140127
  Serious: Yes (Hospitalization)
  Sender: FDA-Public Use
  Company Number: B0867181A

PATIENT
  Age: 58 Year
  Sex: Male

DRUGS (3)
  1. ACYCLOVIR (FORMULATION UNKNOWN) (ACYCLOVIR) [Suspect]
     Indication: HERPES ZOSTER
  2. TRUVADA [Concomitant]
  3. KALETRA [Concomitant]

REACTIONS (4)
  - Thrombocytopenia [None]
  - Contusion [None]
  - Ecchymosis [None]
  - Platelet function test normal [None]
